FAERS Safety Report 20793079 (Version 3)
Quarter: 2022Q3

REPORT INFORMATION
  Report Type: Report from Study
  Country: US (occurrence: US)
  Receive Date: 20220506
  Receipt Date: 20220715
  Transmission Date: 20221027
  Serious: Yes (Other)
  Sender: FDA-Public Use
  Company Number: US-ARGENX-2022-ARGX-US000425

PATIENT
  Age: 83 Year
  Sex: Male
  Weight: 76.19 kg

DRUGS (3)
  1. VYVGART [Suspect]
     Active Substance: EFGARTIGIMOD ALFA-FCAB
     Indication: Myasthenia gravis
     Dosage: 10 MG/KG
     Dates: start: 20220221, end: 202203
  2. VYVGART [Suspect]
     Active Substance: EFGARTIGIMOD ALFA-FCAB
     Dosage: UNK
     Dates: start: 20220613
  3. MESTINON [Concomitant]
     Active Substance: PYRIDOSTIGMINE BROMIDE
     Indication: Myasthenia gravis

REACTIONS (7)
  - Hernia [Recovering/Resolving]
  - Fatigue [Unknown]
  - Rash macular [Unknown]
  - Underdose [Unknown]
  - Dose calculation error [Unknown]
  - Muscle spasms [Unknown]
  - Arthralgia [Unknown]

NARRATIVE: CASE EVENT DATE: 20220201
